FAERS Safety Report 11159936 (Version 2)
Quarter: 2015Q3

REPORT INFORMATION
  Report Type: Report from Study
  Country: GR (occurrence: GR)
  Receive Date: 20150603
  Receipt Date: 20150710
  Transmission Date: 20151125
  Serious: Yes (Hospitalization)
  Sender: FDA-Public Use
  Company Number: GR-B.I. PHARMACEUTICALS,INC./RIDGEFIELD-2015-BI-28240II

PATIENT
  Age: 53 Year
  Sex: Male
  Weight: 63 kg

DRUGS (3)
  1. BIBW 2992 [Suspect]
     Active Substance: AFATINIB
     Indication: GASTROOESOPHAGEAL CANCER
     Dosage: 40 MG
     Route: 048
     Dates: start: 20150408, end: 20150515
  2. CISPLATIN. [Suspect]
     Active Substance: CISPLATIN
     Indication: GASTROOESOPHAGEAL CANCER
     Dosage: 135 MG
     Route: 042
     Dates: start: 20150406, end: 20150428
  3. 5 FU [Suspect]
     Active Substance: FLUOROURACIL
     Indication: GASTROOESOPHAGEAL CANCER
     Dosage: 1350 MG
     Route: 042
     Dates: start: 20150406, end: 20150501

REACTIONS (1)
  - Anaemia [Not Recovered/Not Resolved]

NARRATIVE: CASE EVENT DATE: 20150518
